FAERS Safety Report 7594096-6 (Version None)
Quarter: 2011Q3

REPORT INFORMATION
  Report Type: 
  Country: None (occurrence: None)
  Receive Date: 20110706
  Receipt Date: 20090909
  Transmission Date: 20111222
  Serious: Yes (Death, Other)
  Sender: FDA-Public Use
  Company Number: US-BAYER-200921332NA

PATIENT
  Sex: Female
  Weight: 48 kg

DRUGS (23)
  1. PROGRAF [Concomitant]
     Dosage: 3 DF (DAILY DOSE), BID,
     Dates: start: 20041124
  2. MAGNEVIST [Suspect]
     Indication: VENOGRAM
     Dates: start: 20041118, end: 20041118
  3. CELLCEPT [Concomitant]
     Dates: start: 20041124
  4. EPOGEN [Concomitant]
     Dosage: WITH DIALYSIS
     Dates: start: 20041201
  5. PREDNISONE [Concomitant]
     Dates: start: 20041130, end: 20041130
  6. OMNIPAQUE 140 [Concomitant]
     Indication: VENOGRAM
     Dosage: 70 ML, UNK
     Dates: start: 20060119
  7. MAGNEVIST [Suspect]
     Dates: start: 20051215, end: 20051215
  8. PREDNISONE [Concomitant]
     Dates: start: 20041201, end: 20041201
  9. CORTEF [Concomitant]
     Dates: start: 20041124
  10. TRIAMCINOLONE [Concomitant]
     Dates: start: 20051103
  11. PROHANCE [Suspect]
     Indication: NUCLEAR MAGNETIC RESONANCE IMAGING
  12. CALCITRIOL [Concomitant]
  13. MIDODRINE HYDROCHLORIDE [Concomitant]
     Route: 048
     Dates: start: 20041124, end: 20070420
  14. HYDROCORTISONE [Concomitant]
     Route: 048
     Dates: start: 20060322, end: 20070412
  15. FLORINEF [Concomitant]
     Route: 048
     Dates: start: 20050623, end: 20070420
  16. OMNISCAN [Suspect]
     Indication: NUCLEAR MAGNETIC RESONANCE IMAGING
  17. OPTIMARK [Suspect]
     Indication: NUCLEAR MAGNETIC RESONANCE IMAGING
  18. MULTIHANCE [Suspect]
     Indication: NUCLEAR MAGNETIC RESONANCE IMAGING
  19. SENSIPAR [Concomitant]
  20. COUMADIN [Concomitant]
     Dates: start: 20060321
  21. THEOPHYLLINE [Concomitant]
  22. RENAGEL [Concomitant]
     Route: 048
     Dates: start: 20050623
  23. HYDROCORTISONE [Concomitant]
     Route: 048
     Dates: start: 20060530, end: 20080623

REACTIONS (34)
  - SKIN FIBROSIS [None]
  - PAIN [None]
  - EXTREMITY CONTRACTURE [None]
  - JOINT RANGE OF MOTION DECREASED [None]
  - MUSCULAR WEAKNESS [None]
  - DEFORMITY [None]
  - SKIN EXFOLIATION [None]
  - OEDEMA PERIPHERAL [None]
  - NEPHROGENIC SYSTEMIC FIBROSIS [None]
  - MUSCULOSKELETAL STIFFNESS [None]
  - SEPTIC SHOCK [None]
  - MOBILITY DECREASED [None]
  - ANHEDONIA [None]
  - OCULAR ICTERUS [None]
  - SKIN PLAQUE [None]
  - SKIN HYPERTROPHY [None]
  - SKIN DISCOLOURATION [None]
  - SKIN TIGHTNESS [None]
  - GENERAL PHYSICAL HEALTH DETERIORATION [None]
  - JOINT STIFFNESS [None]
  - HYPOAESTHESIA [None]
  - SCLERODERMA [None]
  - COLITIS [None]
  - SCAR [None]
  - ABASIA [None]
  - SKIN ATROPHY [None]
  - ARTHRALGIA [None]
  - EMOTIONAL DISTRESS [None]
  - ERYTHEMA [None]
  - SKIN INDURATION [None]
  - SKIN HYPERPIGMENTATION [None]
  - RASH PAPULAR [None]
  - PAIN IN EXTREMITY [None]
  - SKIN DISORDER [None]
